FAERS Safety Report 10033285 (Version 1)
Quarter: 2014Q1

REPORT INFORMATION
  Report Type: Spontaneous
  Country: US (occurrence: US)
  Receive Date: 20140324
  Receipt Date: 20140324
  Transmission Date: 20141002
  Serious: Yes (Other)
  Sender: FDA-Public Use
  Company Number: US-AMGEN-USASP2014019481

PATIENT
  Age: 52 Year
  Sex: Female

DRUGS (3)
  1. NEUPOGEN [Suspect]
     Indication: PRODUCT USED FOR UNKNOWN INDICATION
     Dosage: UNK
     Route: 065
  2. CARBOPLATIN [Concomitant]
     Indication: BREAST CANCER
     Dosage: UNK UNK, WEEKLY
  3. GEMZAR [Concomitant]
     Indication: BREAST CANCER
     Dosage: UNK UNK, WEEKLY

REACTIONS (2)
  - Breast cancer [Unknown]
  - White blood cell count decreased [Unknown]
